FAERS Safety Report 10159112 (Version 1)
Quarter: 2014Q2

REPORT INFORMATION
  Report Type: Spontaneous
  Country: US (occurrence: US)
  Receive Date: 20140508
  Receipt Date: 20140508
  Transmission Date: 20141212
  Serious: Yes (Other)
  Sender: FDA-Public Use
  Company Number: US-BRISTOL-MYERS SQUIBB COMPANY-20692786

PATIENT
  Age: 50 Year
  Sex: Male

DRUGS (3)
  1. ABILIFY [Suspect]
     Indication: BIPOLAR DISORDER
     Dates: start: 20140428
  2. LISINOPRIL + HCTZ [Concomitant]
     Indication: BLOOD PRESSURE
     Dates: start: 201404
  3. DIVALPROEX [Concomitant]
     Indication: BIPOLAR DISORDER
     Dates: start: 201404

REACTIONS (4)
  - Mania [Unknown]
  - Self injurious behaviour [Unknown]
  - Loss of consciousness [Recovered/Resolved]
  - Cold sweat [Not Recovered/Not Resolved]
